FAERS Safety Report 4296842-6 (Version None)
Quarter: 2004Q1

REPORT INFORMATION
  Report Type: 
  Country: None (occurrence: None)
  Receive Date: 20040126
  Receipt Date: 20030826
  Transmission Date: 20041129
  Serious: No
  Sender: FDA-Public Use
  Company Number: USA030639709

PATIENT
  Sex: Female
  Weight: 82 kg

DRUGS (8)
  1. STRATTERA [Suspect]
     Indication: ATTENTION DEFICIT/HYPERACTIVITY DISORDER
     Dosage: 120 MG/DAY
     Dates: start: 20030516
  2. STRATTERA [Suspect]
     Indication: BIPOLAR DISORDER
     Dosage: 120 MG/DAY
     Dates: start: 20030516
  3. STRATTERA [Suspect]
     Indication: DEPRESSION
     Dosage: 120 MG/DAY
     Dates: start: 20030516
  4. ABILIFY [Concomitant]
  5. CLONAZEPAM [Concomitant]
  6. DORAL [Concomitant]
  7. LUVOX [Concomitant]
  8. METADATE CD [Concomitant]

REACTIONS (1)
  - PRESCRIBED OVERDOSE [None]
